FAERS Safety Report 7064940-X (Version None)
Quarter: 2010Q4

REPORT INFORMATION
  Report Type: 
  Country: None (occurrence: None)
  Receive Date: 20101027
  Receipt Date: 19921231
  Transmission Date: 20110411
  Serious: Yes (Death, Hospitalization)
  Sender: FDA-Public Use
  Company Number: FR-ROCHE-920500073001

PATIENT
  Sex: Female

DRUGS (3)
  1. FANSIDAR [Suspect]
     Indication: TOXOPLASMOSIS
     Route: 048
     Dates: start: 19901220, end: 19910106
  2. ADIAZINE [Suspect]
     Indication: TOXOPLASMOSIS
     Route: 048
     Dates: start: 19901220, end: 19910106
  3. SOLUPRED [Suspect]
     Indication: TOXOPLASMOSIS
     Route: 048
     Dates: start: 19901220, end: 19910106

REACTIONS (2)
  - CONVULSION [None]
  - ERYTHEMA MULTIFORME [None]
